FAERS Safety Report 23007694 (Version 4)
Quarter: 2024Q1

REPORT INFORMATION
  Report Type: Spontaneous
  Country: BR (occurrence: BR)
  Receive Date: 20230929
  Receipt Date: 20240319
  Transmission Date: 20240410
  Serious: Yes (Death, Life-Threatening, Hospitalization, Other)
  Sender: FDA-Public Use
  Company Number: BR-KOREA IPSEN Pharma-2023-22447

PATIENT
  Sex: Male
  Weight: 58 kg

DRUGS (13)
  1. CABOMETYX [Suspect]
     Active Substance: CABOZANTINIB S-MALATE
     Indication: Renal cancer metastatic
     Dosage: 60 MG 30 CP (1 TABLET A DAY)
     Route: 065
     Dates: start: 20220630, end: 20231214
  2. JARDIANCE [Concomitant]
     Active Substance: EMPAGLIFLOZIN
     Indication: Diabetes mellitus
     Dosage: 25 MG (1 TABLET DAILY)
  3. PURAN [Concomitant]
     Active Substance: LEVOTHYROXINE SODIUM
     Indication: Thyroid disorder
     Dosage: 125 MCG (1 CP PER DAY)
  4. TAMSULOSIN [Concomitant]
     Active Substance: TAMSULOSIN
     Indication: Prostatic disorder
     Dosage: 0,4 MG (1 CP AT NIGHT)
  5. PANTOPRAZOLE [Concomitant]
     Active Substance: PANTOPRAZOLE
     Indication: Gastrointestinal disorder
     Dosage: 40 MG (1 CP PER DAY)
  6. LEVETIRACETAM [Concomitant]
     Active Substance: LEVETIRACETAM
     Indication: Seizure
     Dosage: 500 MG (1 CP EVERY 12 HOURS)
  7. LEVETIRACETAM [Concomitant]
     Active Substance: LEVETIRACETAM
     Dosage: 500 MG (1 CP EVERY 12 HOURS)
  8. PROLIVE [Concomitant]
     Indication: Vitamin supplementation
     Dosage: 916 MG (1CP PER DAY) FOR 30 DAYS, LAST DAY WILL BE 23-SEP-2023
     Dates: start: 202309, end: 202309
  9. PROLIVE [Concomitant]
     Dosage: 916 MG (1CP PER DAY) FOR 30 DAYS, LAST DAY WILL BE 23-SEP-2023
     Dates: end: 202309
  10. VITAMIN D [Concomitant]
     Active Substance: VITAMIN D NOS
     Dosage: 50 MICROLITRE, Q WEEKLY (~50.000 UI 1CP EVERY WEEK)
  11. VITAMIN D [Concomitant]
     Active Substance: VITAMIN D NOS
     Dosage: 50.000 UI 1CP EVERY WEEK
  12. SIMVASTATIN [Concomitant]
     Active Substance: SIMVASTATIN
     Indication: Blood cholesterol
     Dosage: 20 MG (1 CP AT NIGHT)
  13. PROPRANOLOL HYDROCHLORIDE [Concomitant]
     Active Substance: PROPRANOLOL HYDROCHLORIDE

REACTIONS (4)
  - Brain abscess [Unknown]
  - Diverticulitis [Unknown]
  - Malignant neoplasm progression [Fatal]
  - Hypotension [Unknown]
